FAERS Safety Report 25685559 (Version 1)
Quarter: 2025Q3

REPORT INFORMATION
  Report Type: Spontaneous
  Country: US (occurrence: US)
  Receive Date: 20250815
  Receipt Date: 20250815
  Transmission Date: 20251021
  Serious: No
  Sender: LUNDBECK
  Company Number: US-LUNDBECK-DKLU4018204

PATIENT
  Age: 34 Year
  Sex: Male
  Weight: 138.35 kg

DRUGS (1)
  1. VYEPTI [Suspect]
     Active Substance: EPTINEZUMAB-JJMR
     Indication: Product used for unknown indication
     Dosage: 100 MILLIGRAM
     Route: 041

REACTIONS (4)
  - Sneezing [Unknown]
  - Lacrimation increased [Unknown]
  - Oral pruritus [Unknown]
  - Chest discomfort [Unknown]
